FAERS Safety Report 25636646 (Version 1)
Quarter: 2025Q3

REPORT INFORMATION
  Report Type: Spontaneous
  Country: US (occurrence: US)
  Receive Date: 20250804
  Receipt Date: 20250804
  Transmission Date: 20251021
  Serious: No
  Sender: SANOFI AVENTIS
  Company Number: US-SA-2024SA206629

PATIENT
  Sex: Female

DRUGS (29)
  1. DUPIXENT [Suspect]
     Active Substance: DUPILUMAB
     Indication: Asthma
     Route: 058
  2. DUPIXENT [Suspect]
     Active Substance: DUPILUMAB
     Indication: Chronic obstructive pulmonary disease
     Dosage: 300 MG, QOW
     Route: 058
  3. LEVOFLOXACIN [Concomitant]
     Active Substance: LEVOFLOXACIN
  4. LEVOCETIRIZINE DIHYDROCHLORIDE [Concomitant]
     Active Substance: LEVOCETIRIZINE DIHYDROCHLORIDE
  5. PREDNISONE [Concomitant]
     Active Substance: PREDNISONE
  6. FOLIC ACID [Concomitant]
     Active Substance: FOLIC ACID
  7. ROFLUMILAST [Concomitant]
     Active Substance: ROFLUMILAST
  8. ACETAMINOPHEN [Concomitant]
     Active Substance: ACETAMINOPHEN
  9. FERROUS SULFATE [Concomitant]
     Active Substance: FERROUS SULFATE
  10. MONTELUKAST [Concomitant]
     Active Substance: MONTELUKAST
  11. ESOMEPRAZOLE [Concomitant]
     Active Substance: ESOMEPRAZOLE
  12. Aspirin chemipharm [Concomitant]
  13. TYLENOL [Concomitant]
     Active Substance: ACETAMINOPHEN
  14. IPRATROPIUM [Concomitant]
     Active Substance: IPRATROPIUM
  15. CYCLOBENZAPRINE [Concomitant]
     Active Substance: CYCLOBENZAPRINE
  16. AZELASTINE HYDROCHLORIDE [Interacting]
     Active Substance: AZELASTINE HYDROCHLORIDE
  17. MUCINEX DM [Concomitant]
     Active Substance: DEXTROMETHORPHAN HYDROBROMIDE\GUAIFENESIN
  18. CALCIUM [Concomitant]
     Active Substance: CALCIUM
  19. GABAPENTIN [Concomitant]
     Active Substance: GABAPENTIN
  20. VITAMIN D3 [Interacting]
     Active Substance: CHOLECALCIFEROL
  21. ALENDRONATE [Concomitant]
     Active Substance: ALENDRONATE SODIUM
  22. B12 [Concomitant]
  23. FAMOTIDINE [Concomitant]
     Active Substance: FAMOTIDINE
  24. TRELEGY ELLIPTA [Concomitant]
     Active Substance: FLUTICASONE FUROATE\UMECLIDINIUM BROMIDE\VILANTEROL TRIFENATATE
  25. TRAZODONE HCL [Concomitant]
     Active Substance: TRAZODONE HYDROCHLORIDE
  26. EZETIMIBE [Concomitant]
     Active Substance: EZETIMIBE
  27. ALBUTEROL SULFATE [Concomitant]
     Active Substance: ALBUTEROL SULFATE
  28. ALPRAZOLAM [Concomitant]
     Active Substance: ALPRAZOLAM
  29. METOPROLOL [Concomitant]
     Active Substance: METOPROLOL

REACTIONS (2)
  - Nausea [Unknown]
  - Incorrect dose administered [Unknown]
